FAERS Safety Report 9230612 (Version 1)
Quarter: 2013Q2

REPORT INFORMATION
  Report Type: Spontaneous
  Country: US (occurrence: US)
  Receive Date: 20130415
  Receipt Date: 20130415
  Transmission Date: 20140414
  Serious: No
  Sender: FDA-Public Use
  Company Number: US-BAYER-2013-046761

PATIENT
  Age: 58 Year
  Sex: Female
  Weight: 92.97 kg

DRUGS (5)
  1. ALEVE TABLET [Suspect]
     Dosage: 2 UNK, UNK
     Route: 048
     Dates: start: 201204
  2. HYDROCHLOROTHIAZIDE [Concomitant]
  3. LEFLUNOMIDE [Concomitant]
  4. PREDNISONE [Concomitant]
  5. CYMBALTA [Concomitant]

REACTIONS (2)
  - Incorrect drug administration duration [None]
  - Incorrect dose administered [None]
